FAERS Safety Report 14258000 (Version 1)
Quarter: 2017Q4

REPORT INFORMATION
  Report Type: Spontaneous
  Country: FR (occurrence: FR)
  Receive Date: 20171207
  Receipt Date: 20171207
  Transmission Date: 20180321
  Serious: Yes (Other)
  Sender: FDA-Public Use
  Company Number: FR-MERCK KGAA-2036886

PATIENT
  Age: 64 Year
  Sex: Female

DRUGS (1)
  1. NOVOTHYROX [Suspect]
     Active Substance: LEVOTHYROXINE SODIUM
     Indication: PRODUCT USED FOR UNKNOWN INDICATION

REACTIONS (18)
  - Disturbance in attention [None]
  - Psychiatric symptom [None]
  - Abnormal sensation in eye [None]
  - Nightmare [None]
  - Nausea [Recovered/Resolved]
  - Fatigue [None]
  - Mood swings [None]
  - Aversion [None]
  - Liver disorder [None]
  - Feeling abnormal [None]
  - Social avoidant behaviour [None]
  - Abdominal pain [Recovered/Resolved]
  - Tachycardia [None]
  - Alopecia [None]
  - Insomnia [None]
  - Dyspnoea [None]
  - Anxiety [None]
  - Abdominal distension [Recovered/Resolved]

NARRATIVE: CASE EVENT DATE: 20170707
